FAERS Safety Report 18567672 (Version 4)
Quarter: 2023Q2

REPORT INFORMATION
  Report Type: Spontaneous
  Country: US (occurrence: US)
  Receive Date: 20201202
  Receipt Date: 20230630
  Transmission Date: 20230721
  Serious: No
  Sender: FDA-Public Use
  Company Number: US-TOLMAR, INC.-20US024082

PATIENT
  Age: 60 Year
  Sex: Male

DRUGS (4)
  1. ELIGARD [Suspect]
     Active Substance: LEUPROLIDE ACETATE
     Indication: Prostate cancer
     Dosage: 45 MG, Q 6 MONTH
     Route: 058
     Dates: start: 20201123
  2. ELIGARD [Suspect]
     Active Substance: LEUPROLIDE ACETATE
     Dosage: 45 MILLIGRAM
     Dates: start: 20211213
  3. ELIGARD [Suspect]
     Active Substance: LEUPROLIDE ACETATE
     Dosage: 45 MILLIGRAM
     Dates: start: 20230605
  4. XTANDI [Concomitant]
     Active Substance: ENZALUTAMIDE
     Indication: Prostate cancer
     Dosage: UNK

REACTIONS (4)
  - Wrong technique in product usage process [Unknown]
  - Intercepted product preparation error [Unknown]
  - Syringe issue [Unknown]
  - Device leakage [Unknown]

NARRATIVE: CASE EVENT DATE: 20201123
